FAERS Safety Report 6525436-4 (Version None)
Quarter: 2010Q1

REPORT INFORMATION
  Report Type: 
  Country: None (occurrence: None)
  Receive Date: 20100104
  Receipt Date: 20091228
  Transmission Date: 20100710
  Serious: Yes (Other)
  Sender: FDA-Public Use
  Company Number: JP-WYE-H11633709

PATIENT
  Sex: Female

DRUGS (6)
  1. ZOSYN [Suspect]
     Indication: PLEURISY
     Route: 041
     Dates: start: 20091013, end: 20091013
  2. TAKEPRON [Concomitant]
     Indication: REFLUX OESOPHAGITIS
     Route: 048
     Dates: start: 20080326
  3. WARFARIN POTASSIUM [Concomitant]
     Indication: ATRIAL FIBRILLATION
     Route: 048
     Dates: start: 20060704
  4. DISOPYRAMIDE PHOSPHATE [Concomitant]
     Indication: ATRIAL FIBRILLATION
     Route: 048
     Dates: start: 20060719
  5. BLOPRESS [Concomitant]
     Indication: HYPERTENSION
     Route: 048
     Dates: start: 20060104
  6. ASPIRIN [Concomitant]
     Indication: ANGINA PECTORIS
     Route: 048
     Dates: start: 20060104

REACTIONS (6)
  - LOSS OF CONSCIOUSNESS [None]
  - RESPIRATORY ARREST [None]
  - SNORING [None]
  - SOMNOLENCE [None]
  - TONGUE SPASM [None]
  - UNRESPONSIVE TO STIMULI [None]
